FAERS Safety Report 12837613 (Version 1)
Quarter: 2016Q4

REPORT INFORMATION
  Report Type: Report from Study
  Country: MX (occurrence: MX)
  Receive Date: 20161012
  Receipt Date: 20161012
  Transmission Date: 20170207
  Serious: Yes (Other)
  Sender: FDA-Public Use
  Company Number: MX-ORION CORPORATION ORION PHARMA-ENTC2016-0597

PATIENT
  Sex: Female
  Weight: 45 kg

DRUGS (1)
  1. STALEVO [Suspect]
     Active Substance: CARBIDOPA\ENTACAPONE\LEVODOPA
     Indication: PARKINSON^S DISEASE
     Dosage: STRENGTH: 150/37.5/200 MG
     Route: 048
     Dates: start: 2011, end: 20160806

REACTIONS (2)
  - Throat tightness [Not Recovered/Not Resolved]
  - Somnolence [Not Recovered/Not Resolved]
